FAERS Safety Report 6285101-8 (Version None)
Quarter: 2009Q3

REPORT INFORMATION
  Report Type: 
  Country: None (occurrence: None)
  Receive Date: 20090727
  Receipt Date: 20090720
  Transmission Date: 20100115
  Serious: Yes (Death)
  Sender: FDA-Public Use
  Company Number: GR-BRISTOL-MYERS SQUIBB COMPANY-14522809

PATIENT
  Age: 46 Year
  Sex: Male
  Weight: 99 kg

DRUGS (6)
  1. CETUXIMAB [Suspect]
     Indication: HEAD AND NECK CANCER
     Route: 042
     Dates: start: 20070305, end: 20070416
  2. CISPLATIN [Suspect]
     Indication: HEAD AND NECK CANCER
     Route: 042
     Dates: start: 20070305, end: 20070416
  3. RADIATION THERAPY [Suspect]
     Indication: HEAD AND NECK CANCER
     Dosage: 1 DF = 75GY TO THE TUMOR AREA + 45GY TO THE REST OF THE NECK.
  4. ZOFRAN ZYDIS [Concomitant]
     Indication: NAUSEA
     Route: 048
     Dates: start: 20070306, end: 20070410
  5. FUSIDIC ACID [Concomitant]
     Indication: DERMATITIS
     Route: 058
     Dates: start: 20070312, end: 20070425
  6. BETAMETHASONE VALERATE [Concomitant]
     Indication: DERMATITIS
     Route: 061
     Dates: start: 20070312, end: 20070425

REACTIONS (1)
  - HAEMOPTYSIS [None]
